FAERS Safety Report 9258708 (Version 1)
Quarter: 2013Q1

REPORT INFORMATION
  Report Type: Spontaneous
  Country: US (occurrence: None)
  Receive Date: 20121212
  Receipt Date: 20121212
  Transmission Date: 20140127
  Serious: No
  Sender: FDA-Public Use
  Company Number: 1211USA004103

PATIENT
  Sex: Male

DRUGS (3)
  1. PEG-INTRON [Suspect]
     Indication: HEPATITIS C
     Dates: start: 20121001
  2. VICTRELIS [Suspect]
     Indication: HEPATITIS C
     Dates: start: 20121030
  3. RIBAVIRIN (RIBAVIRIN) [Suspect]
     Indication: HEPATITIS C
     Dates: start: 20121001

REACTIONS (4)
  - Weight decreased [None]
  - Cough [None]
  - Influenza like illness [None]
  - Chills [None]
